FAERS Safety Report 6337304-1 (Version None)
Quarter: 2009Q3

REPORT INFORMATION
  Report Type: 
  Country: None (occurrence: None)
  Receive Date: 20090902
  Receipt Date: 20071128
  Transmission Date: 20100115
  Serious: Yes (Hospitalization, Other)
  Sender: FDA-Public Use
  Company Number: US-ASTRAZENECA-2006UW12284

PATIENT
  Age: 41 Year
  Sex: Female
  Weight: 88 kg

DRUGS (26)
  1. SEROQUEL [Suspect]
     Indication: BIPOLAR DISORDER
     Dosage: 25 MG TO 800 MG QHS
     Route: 048
     Dates: start: 20020314
  2. SEROQUEL [Suspect]
     Dosage: 25 - 300 MG
     Route: 048
     Dates: start: 20040209, end: 20061109
  3. ZYPREXA [Suspect]
     Dates: start: 19990101, end: 20030101
  4. OXYCODONE [Concomitant]
     Dosage: 5/325 MG
     Dates: start: 20061019
  5. HALOPERIDOL [Concomitant]
     Dates: start: 20040112
  6. TRAZODONE [Concomitant]
     Dates: start: 20061019
  7. BUPROPION HCL [Concomitant]
     Dates: start: 20050818, end: 20060328
  8. DEPAKOTE [Concomitant]
     Dosage: 500 MG BID TO 500 MG TID
     Route: 048
     Dates: start: 19980409
  9. HALDOL [Concomitant]
     Dosage: 5 MG TO 10  MG HS
     Dates: start: 20020314
  10. HALDOL [Concomitant]
     Dates: start: 20040112, end: 20070103
  11. COGENTIN [Concomitant]
     Indication: INSOMNIA
     Dates: start: 20040112
  12. COGENTIN [Concomitant]
     Indication: INCONTINENCE
     Dates: start: 20040112
  13. COGENTIN [Concomitant]
     Indication: PSYCHOTIC DISORDER
     Dates: start: 20040112
  14. COGENTIN [Concomitant]
     Dosage: 1 MG TO 2 MG DAILY
     Route: 048
     Dates: start: 20060629
  15. COGENTIN [Concomitant]
     Dosage: 1 MG TO 2 MG DAILY
     Route: 048
     Dates: start: 20060629
  16. COGENTIN [Concomitant]
     Dosage: 1 MG TO 2 MG DAILY
     Route: 048
     Dates: start: 20060629
  17. HYDROCHLOROTHIAZIDE [Concomitant]
     Dates: start: 20031222
  18. CELEXA [Concomitant]
     Dosage: 20 ONE DAILY
  19. CARBAMAZEPINE [Concomitant]
     Dates: start: 20040112
  20. CARBAMAZEPINE [Concomitant]
     Dates: start: 20071025
  21. KLONOPIN [Concomitant]
     Route: 048
     Dates: start: 19980409
  22. RISPERDAL [Concomitant]
     Indication: PSYCHOTIC DISORDER
     Dosage: 2 MG TO 4 MG
     Route: 048
     Dates: start: 19980409
  23. SERZONE [Concomitant]
     Indication: INSOMNIA
     Dosage: 100 MG QAM, 200 MG QHS
     Route: 048
     Dates: start: 19980409
  24. SERZONE [Concomitant]
     Indication: INCONTINENCE
     Dosage: 100 MG QAM, 200 MG QHS
     Route: 048
     Dates: start: 19980409
  25. SERZONE [Concomitant]
     Indication: PSYCHOTIC DISORDER
     Dosage: 100 MG QAM, 200 MG QHS
     Route: 048
     Dates: start: 19980409
  26. EFFEXOR XR [Concomitant]
     Dates: start: 20020314

REACTIONS (6)
  - CARDIAC DISORDER [None]
  - CHEST PAIN [None]
  - MOVEMENT DISORDER [None]
  - NEOPLASM [None]
  - TARDIVE DYSKINESIA [None]
  - WEIGHT INCREASED [None]
